FAERS Safety Report 14475518 (Version 1)
Quarter: 2018Q1

REPORT INFORMATION
  Report Type: Spontaneous
  Country: US (occurrence: US)
  Receive Date: 20180131
  Receipt Date: 20180131
  Transmission Date: 20180509
  Serious: Yes (Disabling, Other)
  Sender: FDA-Public Use
  Company Number: None

PATIENT
  Age: 70 Year
  Sex: Female
  Weight: 130.5 kg

DRUGS (5)
  1. CIPROFLOXACIN. [Suspect]
     Active Substance: CIPROFLOXACIN
     Indication: URINARY TRACT INFECTION
     Dosage: ?          QUANTITY:6 TABLET(S);?
     Route: 048
  2. MULTIVITAMIN [Concomitant]
     Active Substance: VITAMINS
  3. CPAP MACHINE WITH OXYGENERATOR [Concomitant]
  4. BABY ASPIRIN [Concomitant]
     Active Substance: ASPIRIN
  5. IRON [Concomitant]
     Active Substance: IRON

REACTIONS (10)
  - Pain in extremity [None]
  - Musculoskeletal stiffness [None]
  - Contusion [None]
  - Tendon rupture [None]
  - Musculoskeletal pain [None]
  - Muscle swelling [None]
  - Sensory disturbance [None]
  - Arthropathy [None]
  - Arthralgia [None]
  - Gait disturbance [None]

NARRATIVE: CASE EVENT DATE: 20180103
